FAERS Safety Report 17845987 (Version 1)
Quarter: 2020Q2

REPORT INFORMATION
  Report Type: Spontaneous
  Country: MY (occurrence: MY)
  Receive Date: 20200531
  Receipt Date: 20200531
  Transmission Date: 20200714
  Serious: Yes (Other)
  Sender: FDA-Public Use
  Company Number: None

PATIENT
  Age: 24 Year
  Weight: 95 kg

DRUGS (1)
  1. CLARITYNE (LORATADINE 10MG) [Suspect]
     Active Substance: LORATADINE
     Indication: RHINITIS ALLERGIC
     Dosage: ?          QUANTITY:1 TABLET(S);?
     Route: 048
     Dates: start: 20200528, end: 20200530

REACTIONS (5)
  - Product quality issue [None]
  - Tachycardia [None]
  - Dizziness [None]
  - Chronic fatigue syndrome [None]
  - Nausea [None]

NARRATIVE: CASE EVENT DATE: 20200528
